FAERS Safety Report 21702080 (Version 1)
Quarter: 2022Q4

REPORT INFORMATION
  Report Type: Spontaneous
  Country: CN (occurrence: CN)
  Receive Date: 20221208
  Receipt Date: 20221208
  Transmission Date: 20230113
  Serious: Yes (Hospitalization, Other)
  Sender: FDA-Public Use
  Company Number: CN-009507513-2212CHN002891

PATIENT
  Age: 75 Year
  Sex: Male
  Weight: 67 kg

DRUGS (3)
  1. KEYTRUDA [Suspect]
     Active Substance: PEMBROLIZUMAB
     Indication: Lung adenocarcinoma
     Dosage: 200 MG, ONCE (ASLO REPORTED AS ONCE DAILY)
     Route: 041
     Dates: start: 20221117, end: 20221117
  2. CATEQUENTINIB [Suspect]
     Active Substance: CATEQUENTINIB
     Indication: Lung adenocarcinoma
     Dosage: 10 MG, QD (STOP FOR 1 WEEK AFTER 14 DAYS MEDICATION)
     Route: 048
     Dates: start: 20221117, end: 20221128
  3. SODIUM CHLORIDE [Concomitant]
     Active Substance: SODIUM CHLORIDE
     Dosage: 100 MILLILITER
     Dates: start: 20221117, end: 20221117

REACTIONS (4)
  - Myocardial necrosis marker increased [Recovering/Resolving]
  - Mitral valve incompetence [Unknown]
  - Immune-mediated myocarditis [Recovering/Resolving]
  - Product use issue [Unknown]

NARRATIVE: CASE EVENT DATE: 20221117
